FAERS Safety Report 5160521-3 (Version None)
Quarter: 2006Q4

REPORT INFORMATION
  Report Type: 
  Country: None (occurrence: None)
  Receive Date: 20061129
  Receipt Date: 20061127
  Transmission Date: 20070319
  Serious: Yes (Hospitalization)
  Sender: FDA-Public Use
  Company Number: CA-ROXANE LABORATORIES, INC-2006-DE-06281GD

PATIENT

DRUGS (1)
  1. MORPHINE [Suspect]

REACTIONS (1)
  - DEPRESSED LEVEL OF CONSCIOUSNESS [None]
